FAERS Safety Report 14840043 (Version 2)
Quarter: 2018Q2

REPORT INFORMATION
  Report Type: Spontaneous
  Country: US (occurrence: US)
  Receive Date: 20180503
  Receipt Date: 20180607
  Transmission Date: 20180711
  Serious: No
  Sender: FDA-Public Use
  Company Number: US-ASTRAZENECA-2018SE45076

PATIENT
  Age: 65 Year
  Sex: Male
  Weight: 119.7 kg

DRUGS (1)
  1. BYDUREON [Suspect]
     Active Substance: EXENATIDE
     Indication: TYPE 2 DIABETES MELLITUS
     Dosage: 2 MG/0.65ML
     Route: 058
     Dates: start: 20170914, end: 20180208

REACTIONS (1)
  - Injection site nodule [Recovered/Resolved]
